FAERS Safety Report 8839524 (Version 1)
Quarter: 2012Q4

REPORT INFORMATION
  Report Type: 
  Country: AT (occurrence: AT)
  Receive Date: 20121015
  Receipt Date: 20121015
  Transmission Date: 20130627
  Serious: Yes (Hospitalization)
  Sender: FDA-Public Use
  Company Number: AT-GE HEALTHCARE MEDICAL DIAGNOSTICS-VISP-GE-1209S-0405

PATIENT
  Age: 60 Year
  Sex: Female
  Weight: 120 kg

DRUGS (2)
  1. VISIPAQUE [Suspect]
     Indication: ABDOMINAL DISCOMFORT
     Route: 042
     Dates: start: 20120925, end: 20120925
  2. PANTOLOC [Concomitant]

REACTIONS (2)
  - Faecal incontinence [Recovered/Resolved]
  - Vomiting [Recovered/Resolved]
